FAERS Safety Report 20418089 (Version 1)
Quarter: 2022Q1

REPORT INFORMATION
  Report Type: Spontaneous
  Country: US (occurrence: US)
  Receive Date: 20220202
  Receipt Date: 20220202
  Transmission Date: 20220423
  Serious: Yes (Other)
  Sender: FDA-Public Use
  Company Number: US-GLAXOSMITHKLINE-USCH2022GSK003986

PATIENT
  Age: 11 Year
  Sex: Male

DRUGS (3)
  1. ASPIRIN [Suspect]
     Active Substance: ASPIRIN
     Indication: Nasal polyps
     Dosage: UNK
     Route: 048
  2. IBUPROFEN [Suspect]
     Active Substance: IBUPROFEN
     Indication: Product used for unknown indication
     Dosage: UNK
  3. DUPILUMAB [Concomitant]
     Active Substance: DUPILUMAB

REACTIONS (18)
  - Rhinitis [Recovering/Resolving]
  - Cough [Recovered/Resolved]
  - Respiratory distress [Recovering/Resolving]
  - Rash [Recovering/Resolving]
  - Wheezing [Recovering/Resolving]
  - Asthma [Recovering/Resolving]
  - Eosinophilia [Recovering/Resolving]
  - Dyspnoea exertional [Recovered/Resolved]
  - Upper respiratory tract infection [Recovering/Resolving]
  - Rhinorrhoea [Recovering/Resolving]
  - Nasal oedema [Recovering/Resolving]
  - Dysphonia [Recovering/Resolving]
  - Obstructive airways disorder [Recovering/Resolving]
  - Bronchial wall thickening [Recovering/Resolving]
  - Pharyngitis [Recovering/Resolving]
  - Aspirin-exacerbated respiratory disease [Recovering/Resolving]
  - Anosmia [Recovering/Resolving]
  - Nasal polyps [Recovering/Resolving]
